FAERS Safety Report 10153960 (Version 1)
Quarter: 2014Q2

REPORT INFORMATION
  Report Type: Spontaneous
  Country: US (occurrence: None)
  Receive Date: 20140502
  Receipt Date: 20140502
  Transmission Date: 20141212
  Serious: Yes (Other)
  Sender: FDA-Public Use
  Company Number: INT_00371_2014

PATIENT
  Age: 27 Month
  Sex: Male

DRUGS (5)
  1. CISPLATIN [Suspect]
     Indication: NEUROBLASTOMA
     Dosage: DF
  2. VINCRISTINE [Concomitant]
  3. ETOPOSIDE [Concomitant]
  4. CARBOPLATIN [Concomitant]
  5. CYCLOPHOSPHAMIDE [Concomitant]

REACTIONS (7)
  - Haemolytic uraemic syndrome [None]
  - Nephropathy toxic [None]
  - Fluid overload [None]
  - Hypertension [None]
  - Pancytopenia [None]
  - Bone marrow failure [None]
  - Gene mutation [None]
